FAERS Safety Report 5954123-6 (Version None)
Quarter: 2008Q4

REPORT INFORMATION
  Report Type: 
  Country: None (occurrence: None)
  Receive Date: 20081113
  Receipt Date: 20081113
  Transmission Date: 20090506
  Serious: Yes (Other)
  Sender: FDA-Public Use
  Company Number: None

PATIENT
  Sex: Female
  Weight: 94.3482 kg

DRUGS (1)
  1. LISINOPRIL [Suspect]
     Indication: HYPERTENSION
     Dosage: ONE PO AM
     Route: 048
     Dates: start: 20081108, end: 20081109

REACTIONS (8)
  - ANOREXIA [None]
  - DRY MOUTH [None]
  - DYSPEPSIA [None]
  - FATIGUE [None]
  - HEADACHE [None]
  - NAUSEA [None]
  - OROPHARYNGEAL PAIN [None]
  - SOMNOLENCE [None]
